FAERS Safety Report 5641761-3 (Version None)
Quarter: 2008Q1

REPORT INFORMATION
  Report Type: 
  Country: None (occurrence: None)
  Receive Date: 20080131
  Receipt Date: 20071110
  Transmission Date: 20080703
  Serious: No
  Sender: FDA-Public Use
  Company Number: PHEH2007US14294

PATIENT
  Sex: Female

DRUGS (2)
  1. TEKTURNA [Suspect]
     Dosage: 150 MG, UNK ORAL
     Route: 048
  2. LASIX [Suspect]

REACTIONS (3)
  - DRUG INTERACTION [None]
  - HEAD DISCOMFORT [None]
  - SENSATION OF PRESSURE [None]
